FAERS Safety Report 23736843 (Version 3)
Quarter: 2024Q2

REPORT INFORMATION
  Report Type: Report from Study
  Country: CA (occurrence: CA)
  Receive Date: 20240412
  Receipt Date: 20240516
  Transmission Date: 20240715
  Serious: Yes (Hospitalization, Other)
  Sender: FDA-Public Use
  Company Number: CA-HORIZON THERAPEUTICS-HZN-2024-003666

PATIENT

DRUGS (8)
  1. RAVICTI [Suspect]
     Active Substance: GLYCEROL PHENYLBUTYRATE
     Indication: Urea cycle disorder
     Dosage: 6.8 ML, TID
     Route: 065
     Dates: start: 20200929, end: 202403
  2. RAVICTI [Suspect]
     Active Substance: GLYCEROL PHENYLBUTYRATE
     Dosage: 6.6 ML, TID
     Route: 048
     Dates: start: 202403
  3. RAVICTI [Suspect]
     Active Substance: GLYCEROL PHENYLBUTYRATE
     Dosage: 6 ML, TID
     Route: 048
     Dates: start: 2024
  4. SODIUM BENZOATE [Concomitant]
     Active Substance: SODIUM BENZOATE
     Indication: Product used for unknown indication
     Dosage: 24 ML, TID
     Route: 048
  5. LANSOPRAZOLE [Concomitant]
     Active Substance: LANSOPRAZOLE
     Indication: Product used for unknown indication
     Dosage: 15 MG FASTAB PO OD
     Route: 048
  6. POTASSIUM CITRATE [Concomitant]
     Active Substance: POTASSIUM CITRATE
     Indication: Product used for unknown indication
     Dosage: 2 MEQ/L
     Route: 065
  7. CLONAZEPAM [Concomitant]
     Active Substance: CLONAZEPAM
     Indication: Product used for unknown indication
     Dosage: 0.5 MG X2 TAB AT BEDTIME
     Route: 065
  8. MELATONIN [Concomitant]
     Active Substance: MELATONIN
     Indication: Product used for unknown indication
     Dosage: UNK, PRN
     Route: 065

REACTIONS (7)
  - Ammonia increased [Recovering/Resolving]
  - Ammonia increased [Recovering/Resolving]
  - Ammonia increased [Recovering/Resolving]
  - Ammonia increased [Recovering/Resolving]
  - Seizure [Recovering/Resolving]
  - Seizure [Unknown]
  - Hyperammonaemia [Unknown]

NARRATIVE: CASE EVENT DATE: 20240301
